FAERS Safety Report 6415769-4 (Version None)
Quarter: 2009Q4

REPORT INFORMATION
  Report Type: 
  Country: None (occurrence: None)
  Receive Date: 20091022
  Receipt Date: 20091002
  Transmission Date: 20100525
  Serious: Yes (Other)
  Sender: FDA-Public Use
  Company Number: 8052953

PATIENT

DRUGS (1)
  1. KEPPRA [Suspect]
     Dosage: 500 MG 2/D TRP
     Route: 064
     Dates: end: 20090930

REACTIONS (3)
  - MATERNAL DRUGS AFFECTING FOETUS [None]
  - MENINGIOMA [None]
  - NEURAL TUBE DEFECT [None]
